FAERS Safety Report 4369029-6 (Version None)
Quarter: 2004Q2

REPORT INFORMATION
  Report Type: 
  Country: None (occurrence: None)
  Receive Date: 20040525
  Receipt Date: 20040512
  Transmission Date: 20050107
  Serious: Yes (Death)
  Sender: FDA-Public Use
  Company Number: APCDSS2003000706

PATIENT
  Age: 25 Year
  Sex: Female
  Weight: 57 kg

DRUGS (8)
  1. REMICADE [Suspect]
     Indication: CROHN'S DISEASE
     Dosage: 255 MG, 1 IN 1 AS NECESSARY, INTRAVENOUS DRIP
     Route: 041
     Dates: start: 20021226, end: 20021226
  2. SALAZOPYRIN (SULFASALAZINE) UNSPECIFIED [Suspect]
     Indication: CROHN'S DISEASE
     Dosage: 2 G, IN 1 DAY
     Dates: start: 20030124, end: 20030223
  3. PREDNISOLONE [Concomitant]
  4. PENTASA [Concomitant]
  5. DAIKENCHUYA (DAIKENTYUTO) [Concomitant]
  6. OZEX (TOSUFLOXACIN TOSILATE) [Concomitant]
  7. POSTERISAN FORTE (POSTERISAN FORTE) OINTMENT [Concomitant]
  8. ENTERAL NUTRITION (SOLUTIONS FOR PARENTERAL NUTRITION) [Concomitant]

REACTIONS (22)
  - ALANINE AMINOTRANSFERASE INCREASED [None]
  - ASPARTATE AMINOTRANSFERASE INCREASED [None]
  - BLOOD ALKALINE PHOSPHATASE INCREASED [None]
  - BLOOD CREATINE PHOSPHOKINASE INCREASED [None]
  - BLOOD LACTATE DEHYDROGENASE INCREASED [None]
  - BLOOD POTASSIUM INCREASED [None]
  - DRUG HYPERSENSITIVITY [None]
  - EOSINOPHILIC MYOCARDITIS [None]
  - GAMMA-GLUTAMYLTRANSFERASE INCREASED [None]
  - HAEMATOCRIT DECREASED [None]
  - HAEMOGLOBIN DECREASED [None]
  - HEADACHE [None]
  - HEPATIC CONGESTION [None]
  - HEPATIC FUNCTION ABNORMAL [None]
  - LYMPHOCYTE STIMULATION TEST POSITIVE [None]
  - OEDEMA [None]
  - PYREXIA [None]
  - RASH [None]
  - RASH GENERALISED [None]
  - RED BLOOD CELL COUNT DECREASED [None]
  - RESPIRATORY DISTRESS [None]
  - SHOCK [None]
